FAERS Safety Report 13537601 (Version 2)
Quarter: 2017Q3

REPORT INFORMATION
  Report Type: Report from Study
  Country: US (occurrence: US)
  Receive Date: 20170511
  Receipt Date: 20170907
  Transmission Date: 20171127
  Serious: Yes (Hospitalization)
  Sender: FDA-Public Use
  Company Number: US-ALEXION PHARMACEUTICALS INC.-A201704633

PATIENT
  Age: 1 Year
  Sex: Female
  Weight: 7 kg

DRUGS (21)
  1. PYRIDOXINE [Concomitant]
     Active Substance: PYRIDOXINE
     Indication: GASTRITIS PROPHYLAXIS
     Dosage: 50 MG, QD
     Route: 048
     Dates: start: 20160105
  2. ERYTHROMYCIN ETHYLSUCCINATE. [Concomitant]
     Active Substance: ERYTHROMYCIN ETHYLSUCCINATE
     Indication: PROPHYLAXIS
     Dosage: 0.6 ML, QID
     Route: 050
     Dates: start: 20160923, end: 20161130
  3. AMOXICILLIN. [Concomitant]
     Active Substance: AMOXICILLIN
     Indication: PNEUMONIA
     Dosage: UNK
     Route: 050
     Dates: start: 20161130, end: 20161210
  4. CEFTRIAXONE. [Concomitant]
     Active Substance: CEFTRIAXONE
     Indication: PNEUMONIA
     Dosage: 385 MG, SINGLE
     Route: 042
     Dates: start: 20161201, end: 20161201
  5. CEFTRIAXONE. [Concomitant]
     Active Substance: CEFTRIAXONE
     Dosage: 750 MG, SINGLE 100MG/KG
     Route: 042
     Dates: start: 20161216, end: 20161216
  6. POLY-VI-SOL WITH IRON [Concomitant]
     Active Substance: IRON\VITAMINS
     Indication: VITAMIN D DECREASED
     Dosage: 0.2 ML, BID
     Route: 050
     Dates: start: 20151223
  7. RANITIDINE. [Concomitant]
     Active Substance: RANITIDINE
     Dosage: 21 MG, TID
     Route: 050
     Dates: start: 20161201
  8. IBUPROFEN. [Concomitant]
     Active Substance: IBUPROFEN
     Indication: PYREXIA
     Dosage: 40 MG, PRN
     Route: 048
     Dates: start: 20161201, end: 20161202
  9. IBUPROFEN. [Concomitant]
     Active Substance: IBUPROFEN
     Dosage: 77 MG, PRN
     Route: 048
     Dates: start: 20161201, end: 20161201
  10. ERYTHROMYCIN ETHYLSUCCINATE. [Concomitant]
     Active Substance: ERYTHROMYCIN ETHYLSUCCINATE
     Dosage: 12 MG, QID
     Route: 050
     Dates: start: 20161201
  11. AMOXICILLIN. [Concomitant]
     Active Substance: AMOXICILLIN
     Dosage: 350 MG, BID 45MG/KG
     Route: 048
     Dates: start: 20161217
  12. PREVACID [Concomitant]
     Active Substance: LANSOPRAZOLE
     Indication: GASTROOESOPHAGEAL REFLUX DISEASE
     Dosage: 7.5 MG, QD
     Route: 048
     Dates: start: 2016
  13. STRENSIQ [Suspect]
     Active Substance: ASFOTASE ALFA
     Indication: HYPOPHOSPHATASIA
     Dosage: 2 MG/KG , TIW  EVERY MWF
     Route: 058
     Dates: start: 20151125
  14. ACETAMINOPHEN. [Concomitant]
     Active Substance: ACETAMINOPHEN
     Indication: MYALGIA
     Dosage: 45 MG, QID
     Route: 042
     Dates: start: 20160115, end: 20170117
  15. ALBUTEROL                          /00139501/ [Concomitant]
     Active Substance: ALBUTEROL
     Indication: UPPER RESPIRATORY TRACT INFECTION
     Dosage: NEBULIZER Q4H
     Route: 055
     Dates: start: 20161209
  16. STRENSIQ [Suspect]
     Active Substance: ASFOTASE ALFA
     Dosage: 18 MG, UNK
     Route: 058
     Dates: start: 20161214
  17. TRIAMCINOLONE [Concomitant]
     Active Substance: TRIAMCINOLONE
     Indication: PROPHYLAXIS
     Dosage: 1 APPLICATION, PRN
     Route: 061
     Dates: start: 20160224
  18. CEFTRIAXONE. [Concomitant]
     Active Substance: CEFTRIAXONE
     Indication: PNEUMONIA
     Dosage: 400 MG, QD
     Route: 042
     Dates: start: 20161202, end: 20161202
  19. AQUAPHOR                           /00298701/ [Concomitant]
     Indication: DERMATITIS
     Dosage: 1 UNK, TID
     Route: 061
     Dates: start: 20151231
  20. ACETAMINOPHEN. [Concomitant]
     Active Substance: ACETAMINOPHEN
     Indication: PYREXIA
     Dosage: 110 MG, PRN
     Route: 048
     Dates: start: 20161201, end: 20161201
  21. RANITIDINE. [Concomitant]
     Active Substance: RANITIDINE
     Indication: GASTROOESOPHAGEAL REFLUX DISEASE
     Dosage: 0.8 ML, TID
     Route: 050
     Dates: start: 20151217, end: 20161201

REACTIONS (1)
  - Pneumonia [Recovered/Resolved]

NARRATIVE: CASE EVENT DATE: 20161216
